FAERS Safety Report 18060347 (Version 1)
Quarter: 2020Q3

REPORT INFORMATION
  Report Type: Spontaneous
  Country: HR (occurrence: HR)
  Receive Date: 20200723
  Receipt Date: 20200723
  Transmission Date: 20201103
  Serious: Yes (Other)
  Sender: FDA-Public Use
  Company Number: HR-MYLANLABS-2020M1065499

PATIENT
  Age: 17 Year
  Sex: Male
  Weight: 82 kg

DRUGS (2)
  1. ANDOL [Suspect]
     Active Substance: ASPIRIN
     Indication: PRODUCT USED FOR UNKNOWN INDICATION
     Dosage: 2 BLISTERA (19 TBL) ANDOLA OD 300 MG.
     Route: 048
     Dates: start: 20200218, end: 20200218
  2. BRUFEN [Suspect]
     Active Substance: IBUPROFEN
     Indication: PRODUCT USED FOR UNKNOWN INDICATION
     Dosage: UNK UNK, QD (SAKA BRUFEN?A A 400 MG)
     Route: 048
     Dates: start: 20200218, end: 20200218

REACTIONS (2)
  - Suicide attempt [Unknown]
  - Intentional overdose [Unknown]

NARRATIVE: CASE EVENT DATE: 20200218
